FAERS Safety Report 7659137-6 (Version None)
Quarter: 2011Q3

REPORT INFORMATION
  Report Type: 
  Country: None (occurrence: None)
  Receive Date: 20110805
  Receipt Date: 20110728
  Transmission Date: 20111222
  Serious: Yes (Other)
  Sender: FDA-Public Use
  Company Number: US-GLAXOSMITHKLINE-A0938804A

PATIENT
  Age: 54 Year
  Sex: Female

DRUGS (13)
  1. HORIZANT [Suspect]
     Indication: RESTLESS LEGS SYNDROME
     Dosage: 600MG PER DAY
     Route: 048
     Dates: start: 20110713, end: 20110728
  2. VITAMIN D [Concomitant]
  3. SUCRALFATE [Concomitant]
  4. CITALOPRAM HYDROBROMIDE [Concomitant]
  5. HYDROCHLOROTHIAZIDE [Concomitant]
  6. CENTRUM MULTIVITAMIN [Concomitant]
  7. SLOW RELEASE IRON [Concomitant]
  8. SINGULAIR [Concomitant]
  9. FISH OIL [Concomitant]
  10. MELOXICAM [Concomitant]
  11. LOSARTAN POTASSIUM [Concomitant]
  12. MULTI-VITAMIN [Concomitant]
  13. CALCIUM ACETATE [Concomitant]

REACTIONS (12)
  - IRRITABILITY [None]
  - INITIAL INSOMNIA [None]
  - MANIA [None]
  - NIGHTMARE [None]
  - INSOMNIA [None]
  - FATIGUE [None]
  - ANGER [None]
  - EUPHORIC MOOD [None]
  - ABNORMAL DREAMS [None]
  - PSYCHOMOTOR HYPERACTIVITY [None]
  - ENERGY INCREASED [None]
  - HYPERSOMNIA [None]
